FAERS Safety Report 19707022 (Version 4)
Quarter: 2022Q4

REPORT INFORMATION
  Report Type: Spontaneous
  Country: DE (occurrence: DE)
  Receive Date: 20210817
  Receipt Date: 20221209
  Transmission Date: 20230113
  Serious: Yes (Life-Threatening, Hospitalization)
  Sender: FDA-Public Use
  Company Number: DE-ADRED-06200-01

PATIENT
  Age: 83 Year
  Sex: Female
  Weight: 56 kg

DRUGS (6)
  1. RAMIPRIL [Suspect]
     Active Substance: RAMIPRIL
     Indication: Product used for unknown indication
     Dosage: 5 MILLIGRAM, QD (5 MG, 1-0-0-0)
     Route: 065
  2. ALBUTEROL [Concomitant]
     Active Substance: ALBUTEROL
     Dosage: IF NEEDED
     Route: 065
  3. BRIMONIDIN 2CARE4 [Concomitant]
     Dosage: 2 MILLIGRAM, BID, 2 MG/ML, 1-0-1-0
     Route: 065
  4. BRIMONIDINE TARTRATE\TIMOLOL MALEATE [Concomitant]
     Active Substance: BRIMONIDINE TARTRATE\TIMOLOL MALEATE
     Dosage: QD, 0.3|5 MG/ML, 0-0-1-0
     Route: 065
  5. ANAGRELID ABZ [Concomitant]
     Dosage: 1 MILLIGRAM, QD, 1 MG, 1-0-0-0
     Route: 065
  6. OMEPRAZOLE [Concomitant]
     Active Substance: OMEPRAZOLE
     Dosage: 40 MILLIGRAM, QD, 40 MG, 1-0-0-0
     Route: 065

REACTIONS (9)
  - Dehydration [Unknown]
  - Localised infection [Unknown]
  - Fall [Unknown]
  - General physical health deterioration [Unknown]
  - Pyrexia [Unknown]
  - Diarrhoea [Unknown]
  - Inappropriate antidiuretic hormone secretion [Unknown]
  - Hyponatraemia [Unknown]
  - Vomiting [Unknown]
